FAERS Safety Report 9933980 (Version 1)
Quarter: 2014Q1

REPORT INFORMATION
  Report Type: Spontaneous
  Country: US (occurrence: US)
  Receive Date: 20140228
  Receipt Date: 20140228
  Transmission Date: 20141002
  Serious: No
  Sender: FDA-Public Use
  Company Number: US-ABBVIE-13P-163-1077327-00

PATIENT
  Age: 76 Year
  Sex: Male
  Weight: 99.88 kg

DRUGS (3)
  1. ANDROGEL [Suspect]
     Indication: BLOOD TESTOSTERONE DECREASED
     Dosage: LOW DOSE IN SCHEDULE
     Dates: start: 20130110, end: 20130210
  2. ANDRODERM [Suspect]
     Indication: BLOOD TESTOSTERONE DECREASED
     Dates: start: 20130211, end: 20130311
  3. ANDRODERM [Suspect]
     Dates: start: 20130312

REACTIONS (3)
  - Application site erythema [Not Recovered/Not Resolved]
  - Application site pruritus [Not Recovered/Not Resolved]
  - Rash papular [Not Recovered/Not Resolved]
